FAERS Safety Report 8873603 (Version 2)
Quarter: 2013Q2

REPORT INFORMATION
  Report Type: Spontaneous
  Country: NL (occurrence: NL)
  Receive Date: 20121030
  Receipt Date: 20130513
  Transmission Date: 20140414
  Serious: Yes (Hospitalization)
  Sender: FDA-Public Use
  Company Number: PHHY2012NL094096

PATIENT
  Age: 52 Year
  Sex: Male

DRUGS (7)
  1. METHOTREXATE [Suspect]
     Indication: PSORIATIC ARTHROPATHY
     Dosage: 5 MG, QW
  2. METHOTREXATE [Suspect]
     Dosage: 15 MG, PER WEEK
  3. PREDNISONE [Suspect]
     Indication: PSORIATIC ARTHROPATHY
     Dosage: 30 MG, UNK
  4. METHYLPREDNISOLONE [Suspect]
     Indication: PSORIATIC ARTHROPATHY
  5. ETANERCEPT [Suspect]
     Indication: PSORIATIC ARTHROPATHY
  6. ADALIMUMAB [Suspect]
     Indication: PSORIATIC ARTHROPATHY
  7. INFLIXIMAB [Concomitant]

REACTIONS (26)
  - Whipple^s disease [Recovered/Resolved]
  - Diarrhoea [Recovered/Resolved]
  - Abdominal pain [Recovered/Resolved]
  - Weight decreased [Recovered/Resolved]
  - Duodenitis [Recovered/Resolved]
  - Hypotension [Recovered/Resolved]
  - Lymphangiectasia [Recovered/Resolved]
  - Neurological symptom [Not Recovered/Not Resolved]
  - Vasculitis [Recovered/Resolved]
  - Lymphadenopathy [Recovered/Resolved]
  - Polyarthritis [Recovered/Resolved]
  - Neuropathy peripheral [Not Recovered/Not Resolved]
  - Speech disorder [Not Recovered/Not Resolved]
  - Headache [Recovered/Resolved]
  - Dizziness [Recovered/Resolved]
  - Muscular weakness [Not Recovered/Not Resolved]
  - Dysarthria [Not Recovered/Not Resolved]
  - VIIth nerve paralysis [Not Recovered/Not Resolved]
  - Visual acuity reduced [Not Recovered/Not Resolved]
  - Monoparesis [Not Recovered/Not Resolved]
  - Cognitive disorder [Not Recovered/Not Resolved]
  - Memory impairment [Not Recovered/Not Resolved]
  - Disturbance in attention [Not Recovered/Not Resolved]
  - Purpura [Recovered/Resolved]
  - Petechiae [Recovered/Resolved]
  - Pain threshold decreased [Not Recovered/Not Resolved]
